FAERS Safety Report 11757530 (Version 6)
Quarter: 2021Q1

REPORT INFORMATION
  Report Type: Other
  Country: US (occurrence: US)
  Receive Date: 20151120
  Receipt Date: 20210319
  Transmission Date: 20210419
  Serious: Yes (Other)
  Sender: FDA-Public Use
  Company Number: US-ROCHE-1664620

PATIENT
  Age: 67 Year

DRUGS (4)
  1. RITUXIMAB. [Suspect]
     Active Substance: RITUXIMAB
     Indication: MANTLE CELL LYMPHOMA
     Dosage: INDUCTION PHASE: WEEKLY X 4 DURING CYCLE 1, THEN ONCE EVERY OTHER CYCLE, FOR A TOTAL OF 9 DOSES.
     Route: 042
  2. RITUXIMAB. [Suspect]
     Active Substance: RITUXIMAB
     Dosage: MAINTENANCE PHASE: ONCE EVERY OTHER CYCLE.
     Route: 042
  3. LENALIDOMIDE [Suspect]
     Active Substance: LENALIDOMIDE
     Dosage: MAINTENANCE PHASE: 10?15MG/DAY ON DAYS 1?21 OF A 28?DAY CYCLE FOR A TOTAL OF 12 CYCLES (CREATININE C
     Route: 065
  4. LENALIDOMIDE [Suspect]
     Active Substance: LENALIDOMIDE
     Indication: MANTLE CELL LYMPHOMA
     Dosage: INDUCTION PHASE: 20?25MG/DAY ON DAYS 1?21 OF A 28?DAY CYCLE FOR A TOTAL OF 12 CYCLES (CREATININE CLE
     Route: 065

REACTIONS (3)
  - Febrile neutropenia [Recovered/Resolved]
  - Cholangitis [Recovered/Resolved]
  - Cholecystitis [Unknown]
